FAERS Safety Report 5343569-5 (Version None)
Quarter: 2007Q2

REPORT INFORMATION
  Report Type: 
  Country: None (occurrence: None)
  Receive Date: 20070604
  Receipt Date: 20070521
  Transmission Date: 20071010
  Serious: Yes (Hospitalization, Other)
  Sender: FDA-Public Use
  Company Number: AU-ELI_LILLY_AND_COMPANY-AU200703003169

PATIENT
  Weight: 3.37 kg

DRUGS (2)
  1. OLANZAPINE [Suspect]
     Dosage: 10 MG, DAILY (1/D)
     Route: 064
  2. PAROXETINE [Concomitant]
     Dosage: 40 MG, DAILY (1/D)
     Route: 064

REACTIONS (9)
  - AGITATION NEONATAL [None]
  - DRUG EXPOSURE DURING PREGNANCY [None]
  - DRUG WITHDRAWAL SYNDROME NEONATAL [None]
  - FOETAL DISTRESS SYNDROME [None]
  - HYPERTONIA NEONATAL [None]
  - HYPOGLYCAEMIA NEONATAL [None]
  - INAPPROPRIATE ANTIDIURETIC HORMONE SECRETION [None]
  - POSTURE ABNORMAL [None]
  - STREPTOCOCCAL SEPSIS [None]
